FAERS Safety Report 9215156 (Version 2)
Quarter: 2013Q2

REPORT INFORMATION
  Report Type: Spontaneous
  Country: US (occurrence: US)
  Receive Date: 20130405
  Receipt Date: 20130415
  Transmission Date: 20140414
  Serious: Yes (Other)
  Sender: FDA-Public Use
  Company Number: CHPA2013US005681

PATIENT
  Age: 55 Year
  Sex: Male

DRUGS (7)
  1. EXCEDRIN EXTRA STRENGTH [Suspect]
     Indication: HEADACHE
     Dosage: 2 DF, PRN
     Route: 048
     Dates: start: 2000
  2. EXCEDRIN EXTRA STRENGTH [Suspect]
     Indication: HEADACHE
     Dosage: 2 DF, PRN
     Route: 048
     Dates: start: 2000
  3. EXCEDRIN EXTRA STRENGTH [Suspect]
     Indication: HEADACHE
     Dosage: 2 DF, PRN
     Route: 048
  4. CHOLESTYRAMINE [Concomitant]
     Indication: CROHN^S DISEASE
     Dosage: UNK, BID
     Route: 048
  5. SULFASALAZINE [Concomitant]
     Indication: CROHN^S DISEASE
     Dosage: 500 MG, UNK
  6. DIPHENOXYLATE/ATROPINE [Concomitant]
     Indication: CROHN^S DISEASE
     Route: 048
  7. MONTELUKAST SODIUM [Concomitant]
     Indication: SEASONAL ALLERGY
     Dosage: 10 MG, QD
     Route: 048

REACTIONS (3)
  - Hypertension [Not Recovered/Not Resolved]
  - Gastrointestinal disorder [Not Recovered/Not Resolved]
  - Dysphagia [Not Recovered/Not Resolved]
